FAERS Safety Report 8348351-2 (Version None)
Quarter: 2012Q2

REPORT INFORMATION
  Report Type: 
  Country: None (occurrence: None)
  Receive Date: 20120509
  Receipt Date: 20120501
  Transmission Date: 20120825
  Serious: Yes (Hospitalization, Other)
  Sender: FDA-Public Use
  Company Number: US-ROCHE-1010337

PATIENT
  Sex: Male
  Weight: 90.8 kg

DRUGS (4)
  1. PEGASYS [Suspect]
     Indication: HEPATITIS C
     Dates: start: 20110819
  2. COPEGUS [Suspect]
  3. TELAPREVIR [Suspect]
     Indication: HEPATITIS C
  4. COPEGUS [Suspect]
     Indication: HEPATITIS C
     Dosage: TO BE GIVEN IN DIVIDED DOSES PER DAY.
     Dates: start: 20110819

REACTIONS (6)
  - EPISTAXIS [None]
  - RED BLOOD CELL COUNT DECREASED [None]
  - PYREXIA [None]
  - ANAEMIA [None]
  - PNEUMONIA [None]
  - HAEMOPTYSIS [None]
